FAERS Safety Report 8482436-5 (Version None)
Quarter: 2012Q3

REPORT INFORMATION
  Report Type: 
  Country: None (occurrence: None)
  Receive Date: 20120702
  Receipt Date: 20120622
  Transmission Date: 20120928
  Serious: Yes (Hospitalization, Other)
  Sender: FDA-Public Use
  Company Number: US-GLAXOSMITHKLINE-A0982724A

PATIENT
  Age: 46 Year
  Sex: Female
  Weight: 180 kg

DRUGS (25)
  1. SAVELLA [Suspect]
     Indication: FIBROMYALGIA
     Route: 048
     Dates: start: 20110907, end: 20110912
  2. PROPRANOLOL [Concomitant]
     Dates: start: 20110902
  3. SYNTHROID [Concomitant]
  4. GLIMEPIRIDE [Concomitant]
     Dates: start: 20110907
  5. ADIPEX-P [Concomitant]
  6. CINNAMON [Concomitant]
     Dates: start: 20110601
  7. CRANBERRY [Concomitant]
     Dates: start: 20110601
  8. FENOFIBRATE [Concomitant]
  9. VITAMIN D [Concomitant]
     Dates: start: 20110907
  10. POTASSIUM [Concomitant]
     Dates: start: 20110713
  11. WARFARIN SODIUM [Concomitant]
  12. VICODIN [Concomitant]
     Dates: start: 20110907
  13. CRESTOR [Suspect]
     Indication: PRODUCT USED FOR UNKNOWN INDICATION
     Dosage: 20MG PER DAY
     Route: 048
     Dates: start: 20110601
  14. IBUPROFEN [Suspect]
     Indication: PRODUCT USED FOR UNKNOWN INDICATION
     Dosage: 800MG THREE TIMES PER DAY
     Route: 048
     Dates: start: 20110601
  15. METFORMIN HCL [Concomitant]
     Dates: start: 20110601
  16. OXYBUTYNIN [Concomitant]
     Dates: start: 20110601
  17. AMITRIPTYLINE HCL [Concomitant]
     Dates: start: 20110601
  18. LISINOPRIL [Concomitant]
     Dates: start: 20110622
  19. LOVAZA [Suspect]
     Indication: PRODUCT USED FOR UNKNOWN INDICATION
     Dosage: 4G PER DAY
     Route: 048
     Dates: start: 20110907
  20. AMOXICILLIN [Concomitant]
  21. M.V.I. [Concomitant]
     Dates: start: 20110601
  22. PRILOSEC [Suspect]
     Indication: PRODUCT USED FOR UNKNOWN INDICATION
     Dosage: 20MG PER DAY
     Route: 048
     Dates: start: 20110601
  23. TORSEMIDE [Suspect]
     Indication: PRODUCT USED FOR UNKNOWN INDICATION
     Dosage: 40MG PER DAY
     Route: 048
     Dates: start: 20110713
  24. ALLOPURINOL [Concomitant]
     Dates: start: 20110713
  25. WELLBUTRIN [Concomitant]

REACTIONS (15)
  - ADVERSE DRUG REACTION [None]
  - DYSPNOEA [None]
  - PAIN [None]
  - RASH VESICULAR [None]
  - RASH ERYTHEMATOUS [None]
  - EXCORIATION [None]
  - SKIN IRRITATION [None]
  - ANAPHYLACTIC SHOCK [None]
  - DERMATITIS EXFOLIATIVE [None]
  - DIARRHOEA [None]
  - SKIN CHAPPED [None]
  - URTICARIA [None]
  - SKIN EXFOLIATION [None]
  - FAECAL INCONTINENCE [None]
  - SKIN LESION [None]
